FAERS Safety Report 5894741-7 (Version None)
Quarter: 2008Q3

REPORT INFORMATION
  Report Type: 
  Country: None (occurrence: None)
  Receive Date: 20080924
  Receipt Date: 20080605
  Transmission Date: 20090109
  Serious: No
  Sender: FDA-Public Use
  Company Number: US-ASTRAZENECA-2008UW11371

PATIENT
  Age: 41 Year
  Sex: Male
  Weight: 98 kg

DRUGS (1)
  1. SEROQUEL [Suspect]
     Dosage: 200 MG (1/2 OF A 400 MG XR TABL) EACH MORNING AND 1600 MG (4 X 400 MG XR TABS) EACH NIGHT
     Route: 048
     Dates: start: 20080301

REACTIONS (3)
  - ABDOMINAL DISTENSION [None]
  - CONSTIPATION [None]
  - WEIGHT INCREASED [None]
